FAERS Safety Report 8970979 (Version 1)
Quarter: 2012Q4

REPORT INFORMATION
  Report Type: 
  Country: US (occurrence: US)
  Receive Date: 20121218
  Receipt Date: 20121218
  Transmission Date: 20130627
  Serious: No
  Sender: FDA-Public Use
  Company Number: US-BAYER-2012-129131

PATIENT
  Age: 60 Year
  Sex: Female

DRUGS (1)
  1. GADAVIST [Suspect]
     Dosage: 7 ml, ONCE

REACTIONS (3)
  - Eyelids pruritus [None]
  - Urticaria [None]
  - Sneezing [None]
